FAERS Safety Report 9421061 (Version 1)
Quarter: 2013Q3

REPORT INFORMATION
  Report Type: Spontaneous
  Country: IR (occurrence: IR)
  Receive Date: 20130725
  Receipt Date: 20130725
  Transmission Date: 20140515
  Serious: Yes (Other)
  Sender: FDA-Public Use
  Company Number: IR-BAYER-2013-088764

PATIENT
  Sex: 0

DRUGS (6)
  1. PROGESTERONE (SOLUTION) [Suspect]
     Route: 064
  2. CLOMID [Concomitant]
  3. GONADOTROPIN [Concomitant]
  4. CHORIONIC GONADOTROPIN [Concomitant]
  5. ACETYLSALICYLIC ACID({=100 MG) [Suspect]
     Route: 064
  6. LAMOTRIGINE [Concomitant]
     Route: 064

REACTIONS (2)
  - Low birth weight baby [Recovered/Resolved]
  - Foetal exposure during pregnancy [None]
